FAERS Safety Report 13100566 (Version 1)
Quarter: 2017Q1

REPORT INFORMATION
  Report Type: Spontaneous
  Country: FR (occurrence: FR)
  Receive Date: 20170110
  Receipt Date: 20170110
  Transmission Date: 20170428
  Serious: Yes (Hospitalization)
  Sender: FDA-Public Use
  Company Number: FR-ROCHE-1790507

PATIENT
  Age: 55 Year
  Sex: Female
  Weight: 86 kg

DRUGS (8)
  1. ARGININE [Concomitant]
     Active Substance: ARGININE
     Route: 048
  2. FUNGIZONE [Concomitant]
     Active Substance: AMPHOTERICIN B
     Route: 048
  3. COTELLIC [Suspect]
     Active Substance: COBIMETINIB
     Indication: MALIGNANT MELANOMA STAGE IV
     Dosage: 1-0-0; 21 DAYS PER MONTH
     Route: 048
     Dates: start: 20160517, end: 20160620
  4. ZELBORAF [Suspect]
     Active Substance: VEMURAFENIB
     Indication: MALIGNANT MELANOMA STAGE IV
     Dosage: 2-0-2?THERAPY RESUMED AT MID-DOSE ON 27/JUN/2016.
     Route: 048
     Dates: start: 20160517, end: 20160620
  5. ZELBORAF [Suspect]
     Active Substance: VEMURAFENIB
     Dosage: THERAPY RESUMED AT MID-DOSE ON 27/JUN/2016.
     Route: 048
     Dates: start: 20160627
  6. DIFFU K [Concomitant]
     Active Substance: POTASSIUM CHLORIDE
     Route: 048
  7. ALLOPURINOL. [Concomitant]
     Active Substance: ALLOPURINOL
     Route: 065
  8. COTELLIC [Suspect]
     Active Substance: COBIMETINIB
     Dosage: 1-0-0; 21 DAYS PER MONTH
     Route: 048
     Dates: start: 20160627

REACTIONS (4)
  - Hepatitis [Recovered/Resolved]
  - Pyrexia [Recovered/Resolved]
  - General physical health deterioration [Recovered/Resolved]
  - Panniculitis [Recovered/Resolved]

NARRATIVE: CASE EVENT DATE: 20160620
